FAERS Safety Report 7747251-6 (Version None)
Quarter: 2011Q3

REPORT INFORMATION
  Report Type: 
  Country: None (occurrence: None)
  Receive Date: 20110913
  Receipt Date: 20110902
  Transmission Date: 20111222
  Serious: Yes (Hospitalization, Other)
  Sender: FDA-Public Use
  Company Number: US-BAYER-2011-006256

PATIENT
  Age: 40 Year
  Sex: Female
  Weight: 131.52 kg

DRUGS (16)
  1. IBUPROFEN [Concomitant]
     Indication: PAIN
     Dosage: 600 MG, TID
     Dates: start: 20090101, end: 20090201
  2. FLUTICASONE PROPIONATE [Concomitant]
     Indication: MULTIPLE ALLERGIES
     Dosage: UNK
     Dates: start: 20050101
  3. LUNESTA [Concomitant]
     Indication: SLEEP DISORDER THERAPY
     Dosage: UNK
     Dates: start: 20080101, end: 20100101
  4. COZAAR [Concomitant]
     Dosage: UNK
     Dates: start: 20080901
  5. YAZ [Suspect]
     Indication: ENDOMETRIOSIS
     Dosage: UNK
     Dates: start: 20080227, end: 20090205
  6. YAZ [Suspect]
     Indication: PREMENSTRUAL SYNDROME
  7. THYROLAR [Concomitant]
     Indication: AUTOIMMUNE THYROIDITIS
     Dosage: UNK UNK, QD
     Route: 048
     Dates: start: 20060501, end: 20090301
  8. ZOLOFT [Concomitant]
     Indication: DEPRESSION
     Dosage: 100 MG, QD
     Dates: start: 20030101
  9. COZAAR [Concomitant]
     Dosage: UNK
     Dates: start: 20080801
  10. FLONASE [Concomitant]
  11. ALLEGRA [Concomitant]
     Indication: MULTIPLE ALLERGIES
     Dosage: 180 MG, QD
     Dates: start: 20080101
  12. COZAAR [Concomitant]
     Dosage: UNK
     Dates: start: 20090201
  13. HYZAAR [Concomitant]
     Indication: HYPERTENSION
     Dosage: UNK UNK, QD
     Dates: start: 20081001, end: 20090201
  14. TRICOR [Concomitant]
     Indication: HYPERCHOLESTEROLAEMIA
     Dosage: 48 MG, QD
     Dates: start: 20050101
  15. AZITHROMYCIN [Concomitant]
     Dosage: 250 MG, UNK
  16. VICODIN [Concomitant]
     Indication: PAIN IN EXTREMITY
     Dosage: UNK UNK, QD

REACTIONS (9)
  - PAIN [None]
  - DEEP VEIN THROMBOSIS [None]
  - SINUS TACHYCARDIA [None]
  - PULMONARY EMBOLISM [None]
  - DYSPNOEA [None]
  - CHEST DISCOMFORT [None]
  - EMOTIONAL DISTRESS [None]
  - ANXIETY [None]
  - FEAR [None]
